FAERS Safety Report 9409228 (Version 2)
Quarter: 2013Q2

REPORT INFORMATION
  Report Type: Spontaneous
  Country: US (occurrence: None)
  Receive Date: 20130423
  Receipt Date: 20130502
  Transmission Date: 20140414
  Serious: Yes (Hospitalization, Other)
  Sender: FDA-Public Use
  Company Number: US-CLINIGEN HEALTHCARE LIMITED-003054

PATIENT
  Age: 66 Year
  Sex: Male

DRUGS (4)
  1. FOSCAVIR [Suspect]
     Indication: CYTOMEGALOVIRUS CHORIORETINITIS
  2. VANCOMYCIN (VANCOMYCIN) [Concomitant]
  3. CEFTAZIDIME (CEFTAZIDIME) [Concomitant]
  4. VORICONAZOLE (VORICONAZOLE) [Concomitant]

REACTIONS (8)
  - Off label use [None]
  - Visual acuity reduced [None]
  - Nocardiosis [None]
  - Uveitis [None]
  - Disease progression [None]
  - Endophthalmitis [None]
  - Retinal detachment [None]
  - Retinal tear [None]
